FAERS Safety Report 10538854 (Version 1)
Quarter: 2014Q4

REPORT INFORMATION
  Report Type: Spontaneous
  Country: NL (occurrence: NL)
  Receive Date: 20141023
  Receipt Date: 20141023
  Transmission Date: 20150529
  Serious: Yes (Disabling, Other)
  Sender: FDA-Public Use
  Company Number: NL-TEVA-515722ISR

PATIENT
  Age: 42 Year
  Sex: Female
  Weight: 99 kg

DRUGS (7)
  1. MIRENA I.U.D. [Concomitant]
     Dosage: INTRAUTERINE DEVICE
     Route: 015
  2. METOJECT INJVLST 15MG/0,3ML (50MG/ML) WWSP [Suspect]
     Active Substance: METHOTREXATE
     Indication: PSORIATIC ARTHROPATHY
     Dosage: 1 TIME PER WEEK 1 PIECE
     Route: 030
     Dates: start: 2005
  3. FOLIUMZUUR TABLET 5MG [Concomitant]
     Active Substance: FOLIC ACID
     Dosage: 1W2T
     Route: 048
  4. SUMATRIPTAN TABLET  50MG [Concomitant]
     Route: 048
  5. METHOTREXATE (METHOTREXATE SODIUM) [Suspect]
     Active Substance: METHOTREXATE SODIUM
     Indication: PSORIATIC ARTHROPATHY
     Dosage: 1 TIME PER WEEK 3 PIECE
     Route: 048
     Dates: start: 2005
  6. DOVOBET GEL [Concomitant]
     Dosage: 2 DOSAGE FORMS DAILY; TWICE DAILY
     Route: 015
  7. ENBREL [Concomitant]
     Active Substance: ETANERCEPT
     Dosage: 1 TIME PER WEEK 1 PIECE (S), EXTRA INFO: 50 MG
     Route: 058
     Dates: start: 20100920

REACTIONS (1)
  - Deafness [Not Recovered/Not Resolved]

NARRATIVE: CASE EVENT DATE: 20130401
